FAERS Safety Report 8971157 (Version 2)
Quarter: 2013Q1

REPORT INFORMATION
  Report Type: Spontaneous
  Country: JP (occurrence: JP)
  Receive Date: 20121217
  Receipt Date: 20130122
  Transmission Date: 20140127
  Serious: Yes (Other)
  Sender: FDA-Public Use
  Company Number: JP-PFIZER INC-2012254931

PATIENT
  Age: 8 Decade
  Sex: Female

DRUGS (5)
  1. LIPITOR [Suspect]
     Indication: HYPERCHOLESTEROLAEMIA
     Dosage: 5 MG, 1X/DAY
     Route: 048
  2. DIOVAN [Suspect]
     Dosage: UNK
     Route: 048
  3. ASPIRIN [Suspect]
     Dosage: UNK
     Route: 048
  4. URSO [Suspect]
     Dosage: UNK
     Route: 048
     Dates: end: 20121115
  5. GLYCYRON [Concomitant]
     Dosage: UNK
     Dates: start: 20121115, end: 20121213

REACTIONS (1)
  - Amylase increased [Not Recovered/Not Resolved]
